FAERS Safety Report 15744123 (Version 1)
Quarter: 2018Q4

REPORT INFORMATION
  Report Type: Spontaneous
  Country: US (occurrence: US)
  Receive Date: 20181220
  Receipt Date: 20181220
  Transmission Date: 20190205
  Serious: Yes (Life-Threatening)
  Sender: FDA-Public Use
  Company Number: None

PATIENT
  Age: 41 Year
  Sex: Female
  Weight: 71.55 kg

DRUGS (6)
  1. LITHIUM CARBONATE ER 300 MG [Suspect]
     Active Substance: LITHIUM CARBONATE
     Indication: BIPOLAR I DISORDER
     Dosage: ?          QUANTITY:360 TABLET(S);?
     Route: 048
     Dates: start: 20181212, end: 20181215
  2. ONE A DAY MULTI-VITAMIN [Concomitant]
  3. IBUPROFEN. [Concomitant]
     Active Substance: IBUPROFEN
  4. LATUDA [Concomitant]
     Active Substance: LURASIDONE HYDROCHLORIDE
  5. LAMOTRIGINE. [Suspect]
     Active Substance: LAMOTRIGINE
     Indication: AFFECTIVE DISORDER
     Dosage: ?          QUANTITY:1 TABLET(S);?
     Route: 048
     Dates: start: 20181115, end: 20181203
  6. ARMOUR THYROID [Concomitant]
     Active Substance: THYROID, PORCINE

REACTIONS (11)
  - Dizziness [None]
  - Gait inability [None]
  - Nausea [None]
  - Orthostatic hypotension [None]
  - Toxicity to various agents [None]
  - Blood pressure inadequately controlled [None]
  - Muscular weakness [None]
  - Presyncope [None]
  - Headache [None]
  - Dysarthria [None]
  - Dehydration [None]

NARRATIVE: CASE EVENT DATE: 20181214
